FAERS Safety Report 4396671-9 (Version None)
Quarter: 2004Q3

REPORT INFORMATION
  Report Type: 
  Country: None (occurrence: None)
  Receive Date: 20040709
  Receipt Date: 20040629
  Transmission Date: 20050211
  Serious: Yes (Other)
  Sender: FDA-Public Use
  Company Number: 2004221565AU

PATIENT
  Sex: Male

DRUGS (2)
  1. XANAX [Suspect]
  2. LEXAPRO [Concomitant]

REACTIONS (1)
  - SUICIDAL IDEATION [None]
